FAERS Safety Report 5695180-4 (Version None)
Quarter: 2008Q2

REPORT INFORMATION
  Report Type: 
  Country: None (occurrence: None)
  Receive Date: 20080404
  Receipt Date: 20080325
  Transmission Date: 20081010
  Serious: Yes (Other)
  Sender: FDA-Public Use
  Company Number: US-PFIZER INC-2008027240

PATIENT
  Sex: Female
  Weight: 65.8 kg

DRUGS (2)
  1. LYRICA [Suspect]
     Indication: FIBROMYALGIA
     Dates: start: 20080101, end: 20080301
  2. LEXAPRO [Concomitant]

REACTIONS (6)
  - BLADDER OPERATION [None]
  - DYSURIA [None]
  - POLLAKIURIA [None]
  - SWELLING [None]
  - URGE INCONTINENCE [None]
  - WEIGHT INCREASED [None]
